FAERS Safety Report 10581295 (Version 2)
Quarter: 2015Q1

REPORT INFORMATION
  Report Type: Spontaneous
  Country: US (occurrence: None)
  Receive Date: 20141110
  Receipt Date: 20150325
  Transmission Date: 20150720
  Serious: Yes (Life-Threatening)
  Sender: FDA-Public Use
  Company Number: 1713747-2014-999189

PATIENT
  Age: 83 Year
  Sex: Female
  Weight: 49 kg

DRUGS (6)
  1. COMBISET [Concomitant]
  2. 0.9% SODIUM CHLORIDE INJECTION, USP IN MINI-BAG PLUS CONTAINER [Suspect]
     Active Substance: SODIUM CHLORIDE
     Indication: CHRONIC KIDNEY DISEASE
     Dates: start: 20141017
  3. OPTIFLUX 160NRE [Concomitant]
  4. 2008T HEMODIALYSIS SYSTEM [Concomitant]
  5. GRANUFLO [Concomitant]
     Active Substance: ACETIC ACID\SODIUM ACETATE
  6. NATURALYTE [Concomitant]
     Active Substance: ACETIC ACID\SODIUM ACETATE

REACTIONS (1)
  - Cardio-respiratory arrest [None]

NARRATIVE: CASE EVENT DATE: 20141017
